FAERS Safety Report 4349115-7 (Version None)
Quarter: 2004Q2

REPORT INFORMATION
  Report Type: 
  Country: None (occurrence: None)
  Receive Date: 20040427
  Receipt Date: 20040427
  Transmission Date: 20050107
  Serious: Yes (Disabling)
  Sender: FDA-Public Use
  Company Number: None

PATIENT
  Sex: Male
  Weight: 63.5036 kg

DRUGS (1)
  1. PREDNISONE [Suspect]
     Indication: LYMPHOMA
     Dosage: 200 MG 10 DAYS OF ORAL
     Route: 048
     Dates: start: 20010901, end: 20031004

REACTIONS (1)
  - ASEPTIC NECROSIS BONE [None]
